FAERS Safety Report 15952558 (Version 1)
Quarter: 2019Q1

REPORT INFORMATION
  Report Type: Spontaneous
  Country: PT (occurrence: PT)
  Receive Date: 20190211
  Receipt Date: 20190211
  Transmission Date: 20190417
  Serious: Yes (Other)
  Sender: FDA-Public Use
  Company Number: PHHY2019PT009204

PATIENT
  Age: 24 Year
  Sex: Male

DRUGS (12)
  1. VALPROATE SODIUM. [Suspect]
     Active Substance: VALPROATE SODIUM
     Indication: SEIZURE
     Dosage: UNK
     Route: 065
  2. LEVETIRACETAM. [Suspect]
     Active Substance: LEVETIRACETAM
     Indication: SEIZURE
     Dosage: UNK
     Route: 065
  3. STIRIPENTOL [Suspect]
     Active Substance: STIRIPENTOL
     Indication: SEIZURE
     Dosage: UNK
     Route: 065
  4. TOPIRAMATE. [Suspect]
     Active Substance: TOPIRAMATE
     Indication: SEIZURE
  5. VALPROATE SODIUM. [Suspect]
     Active Substance: VALPROATE SODIUM
     Indication: SEVERE MYOCLONIC EPILEPSY OF INFANCY
  6. PHENOBARBITAL. [Suspect]
     Active Substance: PHENOBARBITAL
     Indication: SEIZURE
  7. STIRIPENTOL [Suspect]
     Active Substance: STIRIPENTOL
     Indication: SEVERE MYOCLONIC EPILEPSY OF INFANCY
  8. LEVETIRACETAM. [Suspect]
     Active Substance: LEVETIRACETAM
     Indication: SEVERE MYOCLONIC EPILEPSY OF INFANCY
  9. PHENOBARBITAL. [Suspect]
     Active Substance: PHENOBARBITAL
     Indication: SEVERE MYOCLONIC EPILEPSY OF INFANCY
     Dosage: UNK
     Route: 065
  10. TOPIRAMATE. [Suspect]
     Active Substance: TOPIRAMATE
     Indication: SEVERE MYOCLONIC EPILEPSY OF INFANCY
     Dosage: UNK
     Route: 065
  11. ETHOSUXIMIDE. [Suspect]
     Active Substance: ETHOSUXIMIDE
     Indication: SEIZURE
     Dosage: UNK
     Route: 065
  12. ETHOSUXIMIDE. [Suspect]
     Active Substance: ETHOSUXIMIDE
     Indication: SEVERE MYOCLONIC EPILEPSY OF INFANCY

REACTIONS (2)
  - Multiple-drug resistance [Unknown]
  - Drug ineffective [Unknown]
